FAERS Safety Report 21218532 (Version 8)
Quarter: 2023Q2

REPORT INFORMATION
  Report Type: Report from Study
  Country: US (occurrence: US)
  Receive Date: 20220816
  Receipt Date: 20230407
  Transmission Date: 20230722
  Serious: Yes (Hospitalization, Other)
  Sender: FDA-Public Use
  Company Number: US-NOVARTISPH-NVSC2022US184383

PATIENT
  Age: 48 Year
  Sex: Female

DRUGS (9)
  1. KESIMPTA [Suspect]
     Active Substance: OFATUMUMAB
     Indication: Multiple sclerosis
     Dosage: UNK, QMO
     Route: 065
     Dates: start: 202203
  2. KESIMPTA [Suspect]
     Active Substance: OFATUMUMAB
     Indication: Secondary progressive multiple sclerosis
     Dosage: 20 MG, QMO
     Route: 058
     Dates: start: 20220716
  3. KESIMPTA [Suspect]
     Active Substance: OFATUMUMAB
     Dosage: UNK
     Route: 058
     Dates: start: 20221217, end: 20230120
  4. BACLOFEN [Concomitant]
     Active Substance: BACLOFEN
     Indication: Product used for unknown indication
     Dosage: 1 DOSAGE FORM, TID
     Route: 048
     Dates: start: 20220505
  5. CARISOPRODOL [Concomitant]
     Active Substance: CARISOPRODOL
     Indication: Product used for unknown indication
     Dosage: 1 DOSAGE FORM, BID (1.5 QHS FOR 30 DAYS. OXFORD BRAND)
     Route: 048
     Dates: start: 20230111
  6. MEDROL [Concomitant]
     Active Substance: METHYLPREDNISOLONE
     Indication: Product used for unknown indication
     Dosage: UNK (TAKE BY ORAL ROUTE AS DIRECTED PER PACKAGE INSTRUCTIONS FOR 6 DAYS)
     Route: 048
     Dates: start: 20220523
  7. METHOCARBAMOL [Concomitant]
     Active Substance: METHOCARBAMOL
     Indication: Product used for unknown indication
     Dosage: 1 DOSAGE FORM, QID (FOR 30 DAYS)
     Route: 048
     Dates: start: 20230106
  8. PREDNISONE [Concomitant]
     Active Substance: PREDNISONE
     Indication: Product used for unknown indication
     Dosage: UNK (TAKE AS DIRECTED FOR 7 DAYS)
     Route: 048
     Dates: start: 20190711
  9. PROTONIX [Concomitant]
     Active Substance: PANTOPRAZOLE SODIUM
     Indication: Product used for unknown indication
     Dosage: 1 DOSAGE FORM (DELAYED RELEASE) FOR 30 DAYS
     Route: 048
     Dates: start: 20220823

REACTIONS (31)
  - Dyskinesia [Not Recovered/Not Resolved]
  - Ligament sprain [Not Recovered/Not Resolved]
  - Fall [Unknown]
  - Gait inability [Unknown]
  - Multiple sclerosis relapse [Recovering/Resolving]
  - Hypoaesthesia oral [Unknown]
  - Neuropathy peripheral [Unknown]
  - Asthenia [Recovering/Resolving]
  - Limb discomfort [Unknown]
  - Muscular weakness [Unknown]
  - Muscle spasms [Unknown]
  - Hypoaesthesia [Unknown]
  - Mobility decreased [Unknown]
  - Paraesthesia [Unknown]
  - Feeling of body temperature change [Unknown]
  - Cerebellar ataxia [Unknown]
  - Rash [Unknown]
  - Pain in extremity [Unknown]
  - Back pain [Unknown]
  - Neck pain [Unknown]
  - Micturition urgency [Unknown]
  - Pollakiuria [Unknown]
  - Depression [Unknown]
  - Weight increased [Recovering/Resolving]
  - Fatigue [Unknown]
  - Joint range of motion decreased [Unknown]
  - Mucocutaneous toxicity [Unknown]
  - Mouth swelling [Unknown]
  - Skin exfoliation [Unknown]
  - Oral mucosal erythema [Unknown]
  - Drug ineffective [Unknown]

NARRATIVE: CASE EVENT DATE: 20220814
